FAERS Safety Report 9334977 (Version 1)
Quarter: 2013Q2

REPORT INFORMATION
  Report Type: Report from Study
  Country: US (occurrence: US)
  Receive Date: 20130606
  Receipt Date: 20130606
  Transmission Date: 20140414
  Serious: Yes (Hospitalization)
  Sender: FDA-Public Use
  Company Number: US-TEVA-410071USA

PATIENT
  Age: 2 Year
  Sex: Female
  Weight: 12.1 kg

DRUGS (5)
  1. LESTAURTINIB [Suspect]
     Dates: start: 20130516, end: 20130520
  2. DEXAMETHASONE [Suspect]
     Dates: start: 20130516, end: 20130520
  3. MERCAPTOPURINE [Suspect]
     Dates: start: 20130516, end: 20130528
  4. METHOTREXATE [Suspect]
     Dates: start: 20130516, end: 20130523
  5. VINCRISTINE [Suspect]
     Dates: start: 20130516, end: 20130516

REACTIONS (1)
  - Hypoxia [Not Recovered/Not Resolved]
